FAERS Safety Report 18898130 (Version 2)
Quarter: 2022Q1

REPORT INFORMATION
  Report Type: Spontaneous
  Country: SA (occurrence: SA)
  Receive Date: 20210216
  Receipt Date: 20220116
  Transmission Date: 20220423
  Serious: Yes (Life-Threatening, Hospitalization, Other)
  Sender: FDA-Public Use
  Company Number: SA-MLMSERVICE-20210204-2704659-1

PATIENT
  Age: 40 Year
  Sex: Male

DRUGS (2)
  1. TRAMADOL [Suspect]
     Active Substance: TRAMADOL
     Indication: Neck pain
     Dosage: UNK
     Route: 065
  2. ACETAMINOPHEN [Concomitant]
     Active Substance: ACETAMINOPHEN
     Indication: Neck pain
     Dosage: UNK
     Route: 065

REACTIONS (2)
  - Central-alveolar hypoventilation [Not Recovered/Not Resolved]
  - Respiratory failure [Not Recovered/Not Resolved]
